FAERS Safety Report 12246205 (Version 1)
Quarter: 2016Q2

REPORT INFORMATION
  Report Type: Report from Study
  Country: US (occurrence: US)
  Receive Date: 20160407
  Receipt Date: 20160407
  Transmission Date: 20160815
  Serious: Yes (Hospitalization)
  Sender: FDA-Public Use
  Company Number: PHHO2016US004652

PATIENT
  Age: 48 Year
  Sex: Male
  Weight: 78 kg

DRUGS (3)
  1. BENDAMUSTINE [Suspect]
     Active Substance: BENDAMUSTINE
     Indication: B-CELL LYMPHOMA
     Dosage: 350 MG, UNK (INDUCTION: 90 MG/M2 IV OVER 30-60 MINUTES ON DAYS 1 AND 2)
     Route: 042
     Dates: start: 20150605, end: 20150606
  2. BORTEZOMIB [Suspect]
     Active Substance: BORTEZOMIB
     Indication: B-CELL LYMPHOMA
     Dosage: 9.3 MG, UNK (INDUCTION: 1.6 MG/M2 IV OR SC OVER 3-5 SECONDS ON DAYS 1, 8, 15, AND 22)
     Route: 065
     Dates: start: 20150605, end: 20150619
  3. OFATUMUMAB [Suspect]
     Active Substance: OFATUMUMAB
     Indication: B-CELL LYMPHOMA
     Dosage: 300 MG, UNK (INDUCTION CYCLE 1: 300 MG ON DAY 1; CYCLE 2+: 1000 MG ON DAY 1)
     Route: 042
     Dates: start: 20150605, end: 20150605

REACTIONS (1)
  - Clostridium difficile infection [Recovered/Resolved]

NARRATIVE: CASE EVENT DATE: 20150619
